FAERS Safety Report 8381674-X (Version None)
Quarter: 2012Q2

REPORT INFORMATION
  Report Type: 
  Country: None (occurrence: None)
  Receive Date: 20120524
  Receipt Date: 20120509
  Transmission Date: 20120825
  Serious: Yes (Other)
  Sender: FDA-Public Use
  Company Number: BR-AMGEN-BRASP2012022510

PATIENT
  Age: 38 Year
  Sex: Male
  Weight: 72 kg

DRUGS (10)
  1. ENBREL [Suspect]
     Indication: RHEUMATOID ARTHRITIS
     Dosage: 50 MG, WEEKLY
     Route: 058
     Dates: start: 20111201
  2. INSULIN REGULAR                    /01223401/ [Concomitant]
     Indication: DIABETES MELLITUS
     Dosage: 40 IU, 1X/DAY, BEFORE LUNCH TIME
  3. FOLIC ACID [Concomitant]
     Dosage: 5 MG, 1X/DAY
  4. SIMVASTATIN [Concomitant]
     Indication: BLOOD CHOLESTEROL
     Dosage: 20 MG, 1X/DAY
  5. FERROUS SULFATE TAB [Concomitant]
     Indication: ANAEMIA
     Dosage: 10 MG, 2X/DAY
  6. CALCIUM [Concomitant]
     Dosage: UNK
  7. PREDNISONE [Concomitant]
     Dosage: 10 MG, 1X/DAY
  8. METFORMIN HCL [Concomitant]
     Indication: DIABETES MELLITUS
     Dosage: UNK
  9. COLCHICINE [Concomitant]
     Indication: BEHCET'S SYNDROME
     Dosage: 5 MG, 2X/DAY
  10. INSULIN NPH                        /01223407/ [Concomitant]
     Indication: DIABETES MELLITUS
     Dosage: 180IU IN THE MORNING AND 12 IU AFTER DINNER

REACTIONS (6)
  - DYSPNOEA [None]
  - WOUND [None]
  - INJECTION SITE PAIN [None]
  - WOUND INFECTION [None]
  - ADENOIDAL HYPERTROPHY [None]
  - TOOTH EXTRACTION [None]
